FAERS Safety Report 23515283 (Version 1)
Quarter: 2024Q1

REPORT INFORMATION
  Report Type: Spontaneous
  Country: PH (occurrence: PH)
  Receive Date: 20240213
  Receipt Date: 20240213
  Transmission Date: 20240410
  Serious: Yes (Hospitalization, Other)
  Sender: FDA-Public Use
  Company Number: PH-BoehringerIngelheim-2024-BI-006901

PATIENT
  Sex: Female

DRUGS (1)
  1. JARDIANCE [Suspect]
     Active Substance: EMPAGLIFLOZIN
     Indication: Product used for unknown indication

REACTIONS (5)
  - Diabetic ketoacidosis [Unknown]
  - Endotracheal intubation [Unknown]
  - Coma [Unknown]
  - Glycosylated haemoglobin abnormal [Unknown]
  - Hepatic steatosis [Unknown]
